FAERS Safety Report 18383525 (Version 1)
Quarter: 2020Q4

REPORT INFORMATION
  Report Type: Report from Study
  Country: PA (occurrence: PA)
  Receive Date: 20201014
  Receipt Date: 20201014
  Transmission Date: 20210114
  Serious: Yes (Other)
  Sender: FDA-Public Use
  Company Number: NVSC2020PA273116

PATIENT
  Age: 73 Year
  Sex: Female
  Weight: 64.86 kg

DRUGS (3)
  1. KISQALI [Suspect]
     Active Substance: RIBOCICLIB
     Indication: BREAST CANCER
     Dosage: 600 MG, QD
     Route: 048
     Dates: start: 201906, end: 20201006
  2. KISQALI [Suspect]
     Active Substance: RIBOCICLIB
     Dosage: 400 MG, QD
     Route: 048
     Dates: start: 20201006, end: 20201006
  3. ANASTROZOLE. [Suspect]
     Active Substance: ANASTROZOLE
     Indication: BREAST CANCER
     Dosage: UNK
     Route: 065
     Dates: start: 201906

REACTIONS (8)
  - Immune system disorder [Recovering/Resolving]
  - Nausea [Unknown]
  - Diverticulitis [Unknown]
  - Haemorrhoids [Unknown]
  - Weight increased [Unknown]
  - Increased appetite [Unknown]
  - Constipation [Unknown]
  - Haemoglobin decreased [Unknown]

NARRATIVE: CASE EVENT DATE: 201912
